FAERS Safety Report 20922592 (Version 1)
Quarter: 2022Q2

REPORT INFORMATION
  Report Type: Spontaneous
  Country: US (occurrence: US)
  Receive Date: 20220607
  Receipt Date: 20220607
  Transmission Date: 20220721
  Serious: No
  Sender: FDA-Public Use
  Company Number: US-BRISTOL-MYERS SQUIBB COMPANY-2022-037898

PATIENT
  Age: 88 Year
  Sex: Female

DRUGS (2)
  1. REVLIMID [Suspect]
     Active Substance: LENALIDOMIDE
     Indication: Plasma cell myeloma
     Dosage: FREQ:EVERY OTHER DAY.
     Route: 048
     Dates: start: 202203
  2. REVLIMID [Suspect]
     Active Substance: LENALIDOMIDE
     Dosage: FREQ:EVERY OTHER DAY
     Route: 048
     Dates: start: 202203

REACTIONS (5)
  - Nausea [Unknown]
  - Retching [Unknown]
  - Decreased appetite [Unknown]
  - Diarrhoea [Unknown]
  - Drug intolerance [Unknown]
